FAERS Safety Report 9552280 (Version 1)
Quarter: 2013Q3

REPORT INFORMATION
  Report Type: Spontaneous
  Country: US (occurrence: None)
  Receive Date: 20130724
  Receipt Date: 20130724
  Transmission Date: 20140515
  Serious: Yes (Other)
  Sender: FDA-Public Use
  Company Number: PHEH2012US014761

PATIENT
  Age: 63 Year
  Sex: Male

DRUGS (9)
  1. GLEEVEC [Suspect]
     Route: 048
  2. XANAX [Concomitant]
  3. GLUCOTROL XL [Concomitant]
  4. METFORMIN [Concomitant]
  5. PRILOSEC [Concomitant]
  6. ALLOPURINOL [Concomitant]
  7. AGGRENOX [Concomitant]
  8. MICARDIS HCT [Concomitant]
  9. ASA [Concomitant]

REACTIONS (2)
  - Hypotension [None]
  - Anaemia [None]
